FAERS Safety Report 21689306 (Version 1)
Quarter: 2022Q4

REPORT INFORMATION
  Report Type: Spontaneous
  Country: US (occurrence: US)
  Receive Date: 20221206
  Receipt Date: 20221206
  Transmission Date: 20230112
  Serious: Yes (Other)
  Sender: FDA-Public Use
  Company Number: US-AMERICAN REGENT INC-2022003440

PATIENT

DRUGS (1)
  1. LEVETIRACETAM [Suspect]
     Active Substance: LEVETIRACETAM
     Indication: Seizure
     Dosage: UNK;  } 1000 MG WITH ? 100 ML OF NORMAL SALINE  (RECOMMENDED TO BE ADMINISTERED OVER 15 MINS)

REACTIONS (1)
  - Infusion site extravasation [Unknown]
